FAERS Safety Report 21402792 (Version 1)
Quarter: 2022Q4

REPORT INFORMATION
  Report Type: Spontaneous
  Country: IT (occurrence: IT)
  Receive Date: 20221003
  Receipt Date: 20221003
  Transmission Date: 20230112
  Serious: Yes (Other)
  Sender: FDA-Public Use
  Company Number: IT-MYLANLABS-2022M1110554

PATIENT
  Age: 66 Year
  Sex: Female

DRUGS (7)
  1. TIOTROPIUM [Suspect]
     Active Substance: TIOTROPIUM
     Indication: Asthma
     Dosage: 2.5 MICROGRAM, BID
     Route: 055
  2. MONTELUKAST [Suspect]
     Active Substance: MONTELUKAST SODIUM
     Indication: Asthma
     Dosage: 10 MILLIGRAM, QD
     Route: 065
  3. PREDNISONE [Suspect]
     Active Substance: PREDNISONE
     Indication: Asthma
     Dosage: 25 MILLIGRAM, QD
     Route: 048
  4. BECLOMETHASONE\FENOTEROL [Suspect]
     Active Substance: BECLOMETHASONE\FENOTEROL
     Indication: Asthma
     Dosage: 200 MICROGRAM, BID BECLOMETHASONE
     Route: 055
  5. BECLOMETHASONE\FENOTEROL [Suspect]
     Active Substance: BECLOMETHASONE\FENOTEROL
     Dosage: 6 MICROGRAM, BID FORMOTEROL
     Route: 055
  6. OMALIZUMAB [Suspect]
     Active Substance: OMALIZUMAB
     Indication: Asthma
     Dosage: UNK
     Route: 065
  7. MEPOLIZUMAB [Suspect]
     Active Substance: MEPOLIZUMAB
     Indication: Asthma
     Dosage: UNK
     Route: 065

REACTIONS (1)
  - Drug ineffective [Unknown]
